FAERS Safety Report 4693800-4 (Version None)
Quarter: 2005Q2

REPORT INFORMATION
  Report Type: 
  Country: None (occurrence: None)
  Receive Date: 20050616
  Receipt Date: 20050531
  Transmission Date: 20051028
  Serious: Yes (Other)
  Sender: FDA-Public Use
  Company Number: 200504839

PATIENT
  Age: 81 Year
  Sex: Female

DRUGS (1)
  1. LUMIGAN [Suspect]
     Indication: GLAUCOMA
     Dosage: 1 DROP QD EYE

REACTIONS (3)
  - BLINDNESS [None]
  - EYE IRRITATION [None]
  - HYPERAEMIA [None]
